FAERS Safety Report 7583285-2 (Version None)
Quarter: 2011Q2

REPORT INFORMATION
  Report Type: 
  Country: None (occurrence: None)
  Receive Date: 20110627
  Receipt Date: 20110627
  Transmission Date: 20111010
  Serious: No
  Sender: FDA-Public Use
  Company Number: None

PATIENT
  Age: 58 Year
  Sex: Male
  Weight: 74.8435 kg

DRUGS (1)
  1. LEVAQUIN [Suspect]
     Indication: COUGH
     Dosage: 1 TABLET DAILY PO
     Route: 048
     Dates: start: 20110228, end: 20110303

REACTIONS (8)
  - PARAESTHESIA [None]
  - TENDONITIS [None]
  - CREPITATIONS [None]
  - CHRONIC FATIGUE SYNDROME [None]
  - DEPERSONALISATION [None]
  - PAIN [None]
  - INSOMNIA [None]
  - MUSCULAR WEAKNESS [None]
